FAERS Safety Report 18572498 (Version 1)
Quarter: 2020Q4

REPORT INFORMATION
  Report Type: Spontaneous
  Country: MX (occurrence: MX)
  Receive Date: 20201203
  Receipt Date: 20201203
  Transmission Date: 20210114
  Serious: Yes (Death, Other)
  Sender: FDA-Public Use
  Company Number: MX-TERSERA THERAPEUTICS LLC-2020TRS002550

PATIENT

DRUGS (6)
  1. PANTOPRAZOLE [Concomitant]
     Active Substance: PANTOPRAZOLE
     Indication: ABDOMINAL DISCOMFORT
     Dosage: 40 MILLIGRAM, QD
     Route: 048
     Dates: start: 202006
  2. AUTRIN [ASCORBIC ACID;CYANOCOBALAMIN WITH INTRINSIC FACTOR CO;FERROUS [Concomitant]
     Indication: PRODUCT USED FOR UNKNOWN INDICATION
     Dosage: UNK
     Route: 065
     Dates: start: 202006
  3. ZOLADEX [Suspect]
     Active Substance: GOSERELIN ACETATE
     Indication: PROSTATE CANCER
     Dosage: 10.8 MILLIGRAM, EVERY THREE MONTHS
     Route: 058
     Dates: start: 202006
  4. CASODEX [Suspect]
     Active Substance: BICALUTAMIDE
     Indication: PROSTATE CANCER
     Dosage: 150 MILLIGRAM, QD (DAILY)
     Route: 048
     Dates: start: 20200624, end: 202010
  5. TRAMADOL. [Concomitant]
     Active Substance: TRAMADOL
     Indication: PROSTATE CANCER
     Dosage: UNK
     Route: 065
     Dates: start: 202006
  6. PARACETAMOL [Concomitant]
     Active Substance: ACETAMINOPHEN
     Indication: PROSTATE CANCER
     Dosage: 325 MILLIGRAM, TID
     Route: 048
     Dates: start: 202006

REACTIONS (14)
  - Hunger [Recovered/Resolved]
  - Weight decreased [Unknown]
  - Dry mouth [Unknown]
  - Diarrhoea [Recovered/Resolved]
  - Weight increased [Recovered/Resolved]
  - Hypophagia [Unknown]
  - Decreased appetite [Unknown]
  - Drug resistance [Unknown]
  - Taste disorder [Unknown]
  - Anaemia [Unknown]
  - Dyspnoea [Unknown]
  - Death [Fatal]
  - Pulmonary oedema [Not Recovered/Not Resolved]
  - Prostatic specific antigen increased [Unknown]

NARRATIVE: CASE EVENT DATE: 202006
